FAERS Safety Report 8843549 (Version 1)
Quarter: 2012Q4

REPORT INFORMATION
  Report Type: Report from Study
  Country: DE (occurrence: DE)
  Receive Date: 20121016
  Receipt Date: 20121016
  Transmission Date: 20130627
  Serious: Yes (Hospitalization)
  Sender: FDA-Public Use
  Company Number: DE-BAXTER-2012BAX002261

PATIENT
  Age: 64 Year
  Sex: Male

DRUGS (5)
  1. EXTRANEAL [Suspect]
     Indication: CAPD
     Route: 033
  2. NUTRINEAL [Suspect]
     Indication: CAPD
     Route: 033
  3. PHYSIONEAL [Suspect]
     Indication: CAPD
     Route: 033
  4. VITAMIN D [Concomitant]
     Indication: DRUG USE FOR UNKNOWN INDICATION
  5. INSULIN [Concomitant]
     Indication: DRUG USE FOR UNKNOWN INDICATION

REACTIONS (2)
  - Myocardial ischaemia [Recovered/Resolved]
  - Myocardial infarction [Recovered/Resolved]
